FAERS Safety Report 18300880 (Version 1)
Quarter: 2020Q3

REPORT INFORMATION
  Report Type: Spontaneous
  Country: CN (occurrence: CN)
  Receive Date: 20200923
  Receipt Date: 20200923
  Transmission Date: 20201103
  Serious: Yes (Hospitalization, Other)
  Sender: FDA-Public Use
  Company Number: CN-ACCORD-202151

PATIENT
  Age: 20 Year
  Sex: Male
  Weight: 54.5 kg

DRUGS (1)
  1. METHOTREXATE. [Suspect]
     Active Substance: METHOTREXATE
     Indication: NON-HODGKIN^S LYMPHOMA
     Dosage: 3 GRAM PER SQUARE METER
     Route: 041

REACTIONS (2)
  - Acute kidney injury [Recovered/Resolved]
  - Drug level increased [Recovered/Resolved]
